FAERS Safety Report 6220028-9 (Version None)
Quarter: 2009Q2

REPORT INFORMATION
  Report Type: 
  Country: None (occurrence: None)
  Receive Date: 20090609
  Receipt Date: 20090604
  Transmission Date: 20091009
  Serious: No
  Sender: FDA-Public Use
  Company Number: US-B.I. PHARMACEUTICALS,INC./RIDGEFIELD-2009-BP-06897BP

PATIENT
  Sex: Female

DRUGS (1)
  1. CATAPRES [Suspect]
     Indication: HYPERTENSION
     Route: 048
     Dates: start: 20090514, end: 20090514

REACTIONS (1)
  - HEART RATE IRREGULAR [None]
